FAERS Safety Report 7387957-4 (Version None)
Quarter: 2011Q2

REPORT INFORMATION
  Report Type: 
  Country: None (occurrence: None)
  Receive Date: 20110401
  Receipt Date: 20110322
  Transmission Date: 20111010
  Serious: Yes (Hospitalization)
  Sender: FDA-Public Use
  Company Number: US-BIOGENIDEC-2011BI009866

PATIENT
  Sex: Female

DRUGS (5)
  1. UNKNOWN MEDICATIONS [Concomitant]
  2. AVONEX [Suspect]
     Indication: MULTIPLE SCLEROSIS
     Route: 030
     Dates: start: 19970101, end: 20010101
  3. LITHIUM [Concomitant]
     Dates: end: 20110101
  4. AVONEX [Suspect]
     Route: 030
     Dates: start: 20071009
  5. UNKNOWN MEDICATIONS [Concomitant]
     Dates: start: 20110101

REACTIONS (12)
  - ABASIA [None]
  - WEIGHT INCREASED [None]
  - MULTIPLE SCLEROSIS RELAPSE [None]
  - SOMNOLENCE [None]
  - FEELING OF DESPAIR [None]
  - DRUG WITHDRAWAL SYNDROME [None]
  - FEELING ABNORMAL [None]
  - APHASIA [None]
  - PSYCHIATRIC SYMPTOM [None]
  - FALL [None]
  - RIB FRACTURE [None]
  - TOXICITY TO VARIOUS AGENTS [None]
